FAERS Safety Report 8978303 (Version 1)
Quarter: 2012Q4

REPORT INFORMATION
  Report Type: Spontaneous
  Country: US (occurrence: None)
  Receive Date: 20121218
  Receipt Date: 20121218
  Transmission Date: 20130627
  Serious: Yes (Disabling)
  Sender: FDA-Public Use
  Company Number: None

PATIENT
  Age: 59 Year
  Sex: Male
  Weight: 86.18 kg

DRUGS (1)
  1. ZOLOFT [Suspect]
     Indication: DEPRESSION
     Dates: start: 1995, end: 201102

REACTIONS (8)
  - Blood pressure abnormal [None]
  - Abnormal behaviour [None]
  - Drug dependence [None]
  - Myocardial infarction [None]
  - Toxicity to various agents [None]
  - Brain injury [None]
  - Quality of life decreased [None]
  - Psychotic disorder [None]
